FAERS Safety Report 5380941-1 (Version None)
Quarter: 2007Q3

REPORT INFORMATION
  Report Type: 
  Country: None (occurrence: None)
  Receive Date: 20070702
  Receipt Date: 20070313
  Transmission Date: 20080115
  Serious: Yes (Hospitalization)
  Sender: FDA-Public Use
  Company Number: SPV1-2006-00040

PATIENT
  Age: 81 Year
  Sex: Female

DRUGS (8)
  1. PENTASA [Suspect]
     Indication: COLITIS
     Dosage: ORAL
     Route: 048
     Dates: start: 20060419, end: 20060516
  2. FENTOTEROL HYDROBROMIDE [Concomitant]
  3. FUROSEMIDE [Concomitant]
  4. LISINOPRIL [Concomitant]
  5. L-THYROXINE                  (LEVOTHYROXINE SODIUM) [Concomitant]
  6. NEBIVOLOL HYDROCHLORIDE                  (NEBIVOLOL HYDROCHLORIDE) [Concomitant]
  7. NEXIUM [Concomitant]
  8. SYMBICORT [Concomitant]

REACTIONS (1)
  - COLITIS ULCERATIVE [None]
